FAERS Safety Report 9059530 (Version 4)
Quarter: 2013Q3

REPORT INFORMATION
  Report Type: Spontaneous
  Country: US (occurrence: US)
  Receive Date: 20130212
  Receipt Date: 20130723
  Transmission Date: 20140515
  Serious: Yes (Hospitalization, Other)
  Sender: FDA-Public Use
  Company Number: US-BIOGENIDEC-2013BI012308

PATIENT
  Age: 43 Year
  Sex: Female

DRUGS (1)
  1. TYSABRI [Suspect]
     Indication: MULTIPLE SCLEROSIS
     Route: 042
     Dates: start: 20070806

REACTIONS (12)
  - Uterine leiomyoma [Recovered/Resolved]
  - Uterine polyp [Recovered/Resolved]
  - Ovarian cyst ruptured [Recovered/Resolved]
  - Ovarian cyst [Recovered/Resolved]
  - Abdominal pain [Recovered/Resolved]
  - Dysstasia [Recovered/Resolved]
  - Aphagia [Recovered/Resolved]
  - Constipation [Recovered/Resolved]
  - Pain [Recovered/Resolved]
  - Gallbladder non-functioning [Recovered/Resolved]
  - Cholecystitis infective [Recovered/Resolved]
  - Weight decreased [Unknown]
